FAERS Safety Report 7908853-7 (Version None)
Quarter: 2011Q4

REPORT INFORMATION
  Report Type: 
  Country: None (occurrence: None)
  Receive Date: 20111111
  Receipt Date: 20111102
  Transmission Date: 20120403
  Serious: Yes (Hospitalization)
  Sender: FDA-Public Use
  Company Number: US-BAYER-2011-064041

PATIENT
  Age: 27 Year
  Sex: Female

DRUGS (6)
  1. YASMIN [Suspect]
     Indication: PREMENSTRUAL SYNDROME
     Dosage: UNK
     Dates: start: 20041201, end: 20060501
  2. DROSPIRENONE AND ETHINYL ESTRADIOL [Suspect]
     Indication: CONTRACEPTION
     Dosage: UNK
     Dates: start: 20080701, end: 20091101
  3. DROSPIRENONE AND ETHINYL ESTRADIOL [Suspect]
     Indication: PREMENSTRUAL SYNDROME
  4. YASMIN [Suspect]
     Indication: CONTRACEPTION
     Dosage: UNK
     Dates: start: 20070301, end: 20070701
  5. PREVACID [Concomitant]
     Indication: HYPERCHLORHYDRIA
     Dosage: UNK
     Route: 048
     Dates: start: 20040101, end: 20070101
  6. VALTREX [Concomitant]
     Indication: SEXUALLY TRANSMITTED DISEASE
     Dosage: 500 MG, UNK
     Route: 048
     Dates: start: 20040101, end: 20070101

REACTIONS (6)
  - PAIN [None]
  - INJURY [None]
  - EMOTIONAL DISTRESS [None]
  - CHOLECYSTITIS CHRONIC [None]
  - CHOLELITHIASIS [None]
  - ABDOMINAL PAIN [None]
